FAERS Safety Report 7810952-5 (Version None)
Quarter: 2011Q4

REPORT INFORMATION
  Report Type: 
  Country: None (occurrence: None)
  Receive Date: 20111013
  Receipt Date: 20111010
  Transmission Date: 20120403
  Serious: No
  Sender: FDA-Public Use
  Company Number: US-PFIZER INC-2011241276

PATIENT
  Sex: Female
  Weight: 14 kg

DRUGS (2)
  1. LEVOTHYROXINE [Concomitant]
     Dosage: 88 UG, UNK
  2. GENOTROPIN [Suspect]
     Dosage: 0.8 MG, 1X/DAY, 7 INJECTIONS/WEEK
     Route: 058

REACTIONS (1)
  - INCREASED APPETITE [None]
